FAERS Safety Report 21124145 (Version 5)
Quarter: 2023Q2

REPORT INFORMATION
  Report Type: Spontaneous
  Country: IT (occurrence: IT)
  Receive Date: 20220725
  Receipt Date: 20230415
  Transmission Date: 20230722
  Serious: Yes (Life-Threatening, Hospitalization, Other)
  Sender: FDA-Public Use
  Company Number: IT-PFIZER INC-202200927984

PATIENT
  Age: 19 Year
  Sex: Male

DRUGS (11)
  1. ALPRAZOLAM [Suspect]
     Active Substance: ALPRAZOLAM
     Indication: Product used for unknown indication
     Dosage: 1 MILLIGRAM, ONCE A DAY(1 MG, 1X/DAY)
     Route: 065
  2. DIAZEPAM [Suspect]
     Active Substance: DIAZEPAM
     Indication: Detoxification
     Dosage: UNK
     Route: 065
  3. PREGABALIN [Suspect]
     Active Substance: PREGABALIN
     Indication: Psychological abuse
     Dosage: ONCE A DAY(450-600 MG/DAY)
     Route: 065
  4. PREGABALIN [Suspect]
     Active Substance: PREGABALIN
     Indication: Detoxification
  5. BACLOFEN [Suspect]
     Active Substance: BACLOFEN
     Indication: Psychological abuse
     Dosage: ONCE A DAY
     Route: 048
  6. BUPROPION [Suspect]
     Active Substance: BUPROPION
     Indication: Detoxification
     Dosage: UNK
     Route: 065
  7. CHLORDIAZEPOXIDE [Suspect]
     Active Substance: CHLORDIAZEPOXIDE
     Indication: Detoxification
     Dosage: UNK
     Route: 065
  8. METHYLPHENIDATE [Suspect]
     Active Substance: METHYLPHENIDATE
     Indication: Psychological abuse
     Dosage: ONCE A DAY(20-40 MG/DAY)
     Route: 065
  9. 4-AMINO-3-PHENYLBUTYRIC ACID [Suspect]
     Active Substance: 4-AMINO-3-PHENYLBUTYRIC ACID
     Indication: Psychological abuse
     Dosage: 1.6 GRAM, ONCE A DAY(1.6 G, 1X/DAY)
     Route: 065
  10. AMITRIPTYLINE [Concomitant]
     Active Substance: AMITRIPTYLINE
     Indication: Product used for unknown indication
     Dosage: UNK
     Route: 065
  11. OLANZAPINE [Concomitant]
     Active Substance: OLANZAPINE
     Indication: Product used for unknown indication
     Dosage: UNK
     Route: 065

REACTIONS (12)
  - Urinary retention [Not Recovered/Not Resolved]
  - Toxicity to various agents [Not Recovered/Not Resolved]
  - Seizure [Not Recovered/Not Resolved]
  - Suicide attempt [Not Recovered/Not Resolved]
  - Coma [Unknown]
  - Drug abuse [Not Recovered/Not Resolved]
  - Confusional state [Not Recovered/Not Resolved]
  - Drug withdrawal syndrome [Unknown]
  - Depression [Unknown]
  - Poisoning [Unknown]
  - Substance abuse [Unknown]
  - Drug ineffective [Unknown]
